FAERS Safety Report 17448060 (Version 1)
Quarter: 2020Q1

REPORT INFORMATION
  Report Type: Report from Study
  Country: ES (occurrence: ES)
  Receive Date: 20200222
  Receipt Date: 20200222
  Transmission Date: 20200409
  Serious: Yes (Hospitalization)
  Sender: FDA-Public Use
  Company Number: ES-ACCORD-172952

PATIENT
  Age: 55 Year
  Sex: Male

DRUGS (4)
  1. ARIPIPRAZOLE. [Suspect]
     Active Substance: ARIPIPRAZOLE
     Indication: DEPRESSION
     Route: 048
     Dates: start: 20190208, end: 20190905
  2. BETAHISTINE [Interacting]
     Active Substance: BETAHISTINE
     Indication: DIZZINESS
     Route: 048
     Dates: start: 20150824, end: 20190905
  3. ZEBINIX [Interacting]
     Active Substance: ESLICARBAZEPINE ACETATE
     Indication: EPILEPSY
     Dosage: STRENGTH: 800 MG TABLETS, 30 TABLETS
     Route: 048
     Dates: start: 20190819, end: 20190905
  4. CLONAZEPAM. [Interacting]
     Active Substance: CLONAZEPAM
     Indication: AGITATION
     Route: 048
     Dates: start: 20180828

REACTIONS (3)
  - Somnolence [Recovered/Resolved]
  - Hallucination [Recovered/Resolved]
  - Drug interaction [Unknown]

NARRATIVE: CASE EVENT DATE: 201908
